FAERS Safety Report 7183262-X (Version None)
Quarter: 2010Q4

REPORT INFORMATION
  Report Type: 
  Country: None (occurrence: None)
  Receive Date: 20101222
  Receipt Date: 20100513
  Transmission Date: 20110411
  Serious: No
  Sender: FDA-Public Use
  Company Number: A0859571A

PATIENT
  Age: 56 Year
  Sex: Female

DRUGS (3)
  1. FLONASE [Suspect]
     Route: 045
     Dates: start: 20100511
  2. THYROID [Concomitant]
  3. ESTROGEN [Concomitant]

REACTIONS (3)
  - DYSPNOEA [None]
  - NASAL CONGESTION [None]
  - NASAL OEDEMA [None]
